FAERS Safety Report 21868469 (Version 1)
Quarter: 2023Q1

REPORT INFORMATION
  Report Type: Spontaneous
  Country: JP (occurrence: JP)
  Receive Date: 20230116
  Receipt Date: 20230116
  Transmission Date: 20230418
  Serious: Yes (Death, Other)
  Sender: FDA-Public Use
  Company Number: JP-CHUGAI-2023000617

PATIENT
  Age: 73 Year
  Sex: Male

DRUGS (2)
  1. HERCEPTIN [Suspect]
     Active Substance: TRASTUZUMAB
     Indication: Colon cancer
     Dosage: 8 MILLIGRAM/KILOGRAM, SINGLE
     Route: 041
     Dates: start: 20221027, end: 20221027
  2. PERJETA [Suspect]
     Active Substance: PERTUZUMAB
     Indication: Colon cancer
     Dosage: 840 MILLIGRAM, SINGLE
     Route: 041
     Dates: start: 20221027, end: 20221027

REACTIONS (2)
  - Interstitial lung disease [Fatal]
  - Lymphangiosis carcinomatosa [Unknown]

NARRATIVE: CASE EVENT DATE: 20221101
